FAERS Safety Report 7106522-7 (Version None)
Quarter: 2010Q4

REPORT INFORMATION
  Report Type: 
  Country: None (occurrence: None)
  Receive Date: 20101116
  Receipt Date: 20101112
  Transmission Date: 20110411
  Serious: Yes (Death)
  Sender: FDA-Public Use
  Company Number: PL-PFIZER INC-2010096592

PATIENT
  Age: 53 Year
  Sex: Male
  Weight: 85 kg

DRUGS (7)
  1. BLINDED *NO SUBJECT DRUG [Suspect]
     Indication: PROSTATE CANCER
     Dosage: 37.5 MG, DAILY
     Route: 048
     Dates: start: 20100617
  2. PLACEBO [Suspect]
     Indication: PROSTATE CANCER
     Dosage: 37.5 MG, DAILY
     Route: 048
     Dates: start: 20100617
  3. SUNITINIB MALATE [Suspect]
     Indication: PROSTATE CANCER
     Dosage: 37.5 MG, DAILY
     Route: 048
     Dates: start: 20100617
  4. PREDNISONE [Suspect]
     Indication: PROSTATE CANCER
     Dosage: 5 MG, 2X/DAY
     Route: 048
     Dates: start: 20100617
  5. FENTANYL [Concomitant]
     Indication: TUMOUR PAIN
     Dosage: UNK
     Route: 062
     Dates: start: 20100401
  6. KETOPROFEN [Concomitant]
     Indication: TUMOUR PAIN
     Dosage: UNK
     Dates: start: 20090301
  7. OMEPRAZOLE [Concomitant]
     Indication: PROPHYLAXIS
     Dosage: UNK
     Dates: start: 20090301

REACTIONS (12)
  - ALANINE AMINOTRANSFERASE INCREASED [None]
  - ANAL ULCER [None]
  - ASPARTATE AMINOTRANSFERASE INCREASED [None]
  - ASTHENIA [None]
  - C-REACTIVE PROTEIN INCREASED [None]
  - DEATH [None]
  - DRUG TOXICITY [None]
  - HAEMATURIA [None]
  - HYPOTENSION [None]
  - MALIGNANT NEOPLASM PROGRESSION [None]
  - PLATELET COUNT DECREASED [None]
  - PROSTATE CANCER [None]
